FAERS Safety Report 4773153-3 (Version None)
Quarter: 2005Q3

REPORT INFORMATION
  Report Type: 
  Country: None (occurrence: None)
  Receive Date: 20050915
  Receipt Date: 20050915
  Transmission Date: 20060218
  Serious: Yes (Death, Hospitalization)
  Sender: FDA-Public Use
  Company Number: None

PATIENT
  Sex: Female
  Weight: 61.1 kg

DRUGS (5)
  1. DOXORUBICIN HCL [Suspect]
     Indication: BREAST CANCER
     Dosage: SEE IMAGE
     Route: 040
     Dates: start: 20050520, end: 20050729
  2. CYCLOPHOSPHAMIDE [Suspect]
     Dosage: SEE IMAGE
     Route: 048
     Dates: start: 20050520, end: 20050802
  3. FILGRASTIM [Suspect]
     Dosage: SEE IMAGE
     Route: 058
     Dates: start: 20050520, end: 20050802
  4. BACTRIM DS [Suspect]
     Dosage: SEE IMAGE
     Route: 048
     Dates: start: 20050520, end: 20050802
  5. PACLITAXEL [Suspect]
     Dosage: SEE IMAGE
     Dates: start: 20050520

REACTIONS (3)
  - FEBRILE NEUTROPENIA [None]
  - HEPATIC FAILURE [None]
  - HEPATITIS B [None]
